FAERS Safety Report 16748906 (Version 1)
Quarter: 2019Q3

REPORT INFORMATION
  Report Type: Spontaneous
  Country: US (occurrence: US)
  Receive Date: 20190710
  Receipt Date: 20190710
  Transmission Date: 20191005
  Serious: Yes (Life-Threatening, Hospitalization)
  Sender: FDA-Public Use
  Company Number: None

PATIENT
  Age: 73 Year
  Sex: Male

DRUGS (1)
  1. CAPECITABINE TAB 500MG [Suspect]
     Active Substance: CAPECITABINE
     Indication: CARDIAC NEOPLASM MALIGNANT
     Route: 048
     Dates: start: 20190607, end: 20190710

REACTIONS (2)
  - Chest pain [None]
  - Vasospasm [None]

NARRATIVE: CASE EVENT DATE: 20190710
